FAERS Safety Report 6440002-7 (Version None)
Quarter: 2009Q4

REPORT INFORMATION
  Report Type: 
  Country: None (occurrence: None)
  Receive Date: 20091112
  Receipt Date: 20091112
  Transmission Date: 20100525
  Serious: Yes (Other)
  Sender: FDA-Public Use
  Company Number: None

PATIENT
  Sex: Female
  Weight: 59.3305 kg

DRUGS (11)
  1. HEPARIN SODIUM [Suspect]
     Indication: THROMBOSIS PROPHYLAXIS
     Dosage: 5000 UNITS Q8H SQ
     Route: 058
     Dates: start: 20090811, end: 20090811
  2. LEVAQUIN [Concomitant]
  3. ROBITUSSIN [Concomitant]
  4. METHOTREXATE [Concomitant]
  5. FISH OIL [Concomitant]
  6. CA/VITD [Concomitant]
  7. GLUCOTROL [Concomitant]
  8. METOPROLOL [Concomitant]
  9. NIACIN [Concomitant]
  10. ZOCOR [Concomitant]
  11. METFORMIN HCL [Concomitant]

REACTIONS (2)
  - ERYTHEMA [None]
  - RASH [None]
